FAERS Safety Report 11728948 (Version 2)
Quarter: 2016Q3

REPORT INFORMATION
  Report Type: Report from Study
  Country: CN (occurrence: CN)
  Receive Date: 20151112
  Receipt Date: 20160915
  Transmission Date: 20161109
  Serious: Yes (Hospitalization)
  Sender: FDA-Public Use
  Company Number: CN-ASTRAZENECA-2015SF04717

PATIENT
  Age: 22601 Day
  Sex: Male

DRUGS (19)
  1. TROPISETRON HYDROCHLORIDE [Concomitant]
     Active Substance: TROPISETRON HYDROCHLORIDE
     Indication: GASTRIC ULCER
     Route: 042
  2. LANSOPRAZOLE INTRAVENOUS [Concomitant]
     Indication: OESOPHAGITIS
     Route: 042
  3. FRUCTOSE [Concomitant]
     Active Substance: FRUCTOSE
     Indication: CHOLELITHIASIS
     Route: 042
  4. METOCLOPRAMIDE. [Concomitant]
     Active Substance: METOCLOPRAMIDE
     Indication: OESOPHAGITIS
     Route: 042
  5. ONGLYZA [Suspect]
     Active Substance: SAXAGLIPTIN HYDROCHLORIDE
     Indication: TYPE 2 DIABETES MELLITUS
     Route: 048
     Dates: start: 20150729
  6. METFORMIN [Suspect]
     Active Substance: METFORMIN HYDROCHLORIDE
     Indication: TYPE 2 DIABETES MELLITUS
     Route: 048
     Dates: start: 20150916
  7. AMOXICILLIN CLAVULANIC ACID POTASSIUM [Concomitant]
     Indication: GASTRIC ULCER
     Route: 048
  8. COLLOIDAL BISMUTH PECTIN [Concomitant]
     Active Substance: BISMUTH
     Indication: GASTRIC ULCER
     Route: 048
  9. METFORMIN [Suspect]
     Active Substance: METFORMIN HYDROCHLORIDE
     Indication: TYPE 2 DIABETES MELLITUS
     Route: 048
     Dates: start: 20150729, end: 20150818
  10. METFORMIN [Suspect]
     Active Substance: METFORMIN HYDROCHLORIDE
     Indication: TYPE 2 DIABETES MELLITUS
     Route: 048
     Dates: start: 20150819, end: 20150830
  11. AMOXICILLIN CLAVULANIC ACID [Concomitant]
     Active Substance: AMOXICILLIN\CLAVULANIC ACID
     Indication: OESOPHAGITIS
     Route: 048
  12. CEFTRIAXONE.TAZOBACTAM [Concomitant]
     Indication: BILIARY COLIC
     Dosage: TWO TIMES A DAY
     Route: 042
  13. COMPOUND ALLANTOIN [Concomitant]
     Indication: GASTRIC ULCER
     Route: 048
  14. CALCIUM DIBUTYRYLADENOSINE CYCLOPHOSPHATE [Concomitant]
     Indication: GASTRIC ULCER
     Route: 042
  15. JINSHUIBAO [Concomitant]
     Route: 065
  16. PANTOPRAZOLE [Concomitant]
     Active Substance: PANTOPRAZOLE SODIUM
     Indication: GASTRIC ULCER
     Route: 048
  17. CLARITHROMYCIN. [Concomitant]
     Active Substance: CLARITHROMYCIN
     Indication: GASTRIC ULCER
     Route: 048
  18. METFORMIN [Suspect]
     Active Substance: METFORMIN HYDROCHLORIDE
     Indication: TYPE 2 DIABETES MELLITUS
     Route: 048
     Dates: start: 20150831, end: 20150915
  19. LANSOPRAZOLE. [Concomitant]
     Active Substance: LANSOPRAZOLE
     Indication: GASTRIC ULCER
     Route: 042

REACTIONS (1)
  - Gastric ulcer [Recovered/Resolved]

NARRATIVE: CASE EVENT DATE: 20151019
